FAERS Safety Report 24742183 (Version 1)
Quarter: 2024Q4

REPORT INFORMATION
  Report Type: Spontaneous
  Country: AU (occurrence: AU)
  Receive Date: 20241217
  Receipt Date: 20241217
  Transmission Date: 20250115
  Serious: Yes (Life-Threatening, Hospitalization)
  Sender: MACLEODS
  Company Number: AU-MLMSERVICE-20241202-PI275889-00033-1

PATIENT

DRUGS (2)
  1. CLOPIDOGREL [Suspect]
     Active Substance: CLOPIDOGREL BISULFATE
     Indication: Antiplatelet therapy
     Route: 065
  2. ASPIRIN [Suspect]
     Active Substance: ASPIRIN
     Indication: Antiplatelet therapy
     Route: 065

REACTIONS (6)
  - Diverticulitis [Unknown]
  - Haematemesis [Unknown]
  - Ulcer [Unknown]
  - Haemoptysis [Unknown]
  - Epistaxis [Unknown]
  - Haemorrhage [Unknown]
